FAERS Safety Report 7817542-9 (Version None)
Quarter: 2011Q4

REPORT INFORMATION
  Report Type: 
  Country: None (occurrence: None)
  Receive Date: 20111017
  Receipt Date: 20111006
  Transmission Date: 20120403
  Serious: Yes (Hospitalization)
  Sender: FDA-Public Use
  Company Number: US-BAYER-200935652NA

PATIENT
  Age: 33 Year
  Sex: Female
  Weight: 75 kg

DRUGS (21)
  1. IBUPROFEN [Concomitant]
     Indication: PAIN
     Dosage: UNK UNK, PRN
  2. PROTONIX [Concomitant]
     Indication: PRODUCT USED FOR UNKNOWN INDICATION
  3. LOVENOX [Concomitant]
     Dosage: 50 MG, QD
     Dates: end: 20090709
  4. LOVENOX [Concomitant]
     Dosage: UNK
     Dates: start: 20090711
  5. ARIXTRA [Concomitant]
     Dosage: 7.5 MG, QD
     Dates: start: 20060701
  6. METRONIDAZOLE [Concomitant]
     Dosage: 500 MG, UNK
     Dates: start: 20040405
  7. POTASSIUM [Concomitant]
  8. PEPCID [Concomitant]
     Indication: PRODUCT USED FOR UNKNOWN INDICATION
  9. LOVENOX [Concomitant]
     Dosage: 15 MG, UNK
     Dates: end: 20060724
  10. YASMIN [Suspect]
     Dosage: UNK
     Route: 048
     Dates: start: 20020101, end: 20040401
  11. MULTI-VITAMIN [Concomitant]
  12. TEQUIN [Concomitant]
     Indication: PRODUCT USED FOR UNKNOWN INDICATION
     Dosage: 400 MG, UNK
     Dates: start: 20040405
  13. QUESTRAN [Concomitant]
     Dosage: UNK UNK, PRN
  14. LASIX [Concomitant]
     Dosage: 20 MG, QD
     Dates: start: 20040401, end: 20040701
  15. PHENERGAN VC [Concomitant]
     Indication: PRODUCT USED FOR UNKNOWN INDICATION
  16. ACTIGALL [Concomitant]
     Dosage: UNK
     Dates: start: 20060601
  17. DILAUDID [Concomitant]
     Indication: PRODUCT USED FOR UNKNOWN INDICATION
  18. NEXIUM [Concomitant]
     Indication: GASTROOESOPHAGEAL REFLUX DISEASE
     Dosage: 40 MG, QD
  19. MOTRIN [Concomitant]
     Indication: PAIN
     Dosage: UNK UNK, PRN
     Dates: start: 20090711
  20. POTASSIUM CHLORIDE [Concomitant]
     Dosage: 20 MEQ, UNK
     Dates: start: 20040428
  21. REFLUDAN [Concomitant]
     Indication: HEPATIC VEIN THROMBOSIS

REACTIONS (8)
  - BUDD-CHIARI SYNDROME [None]
  - ANTEPARTUM HAEMORRHAGE [None]
  - CHOLECYSTITIS CHRONIC [None]
  - CHOLECYSTITIS [None]
  - GALLBLADDER INJURY [None]
  - CHOLELITHIASIS [None]
  - LIVER INJURY [None]
  - HEPATIC VEIN THROMBOSIS [None]
